FAERS Safety Report 19867853 (Version 2)
Quarter: 2021Q4

REPORT INFORMATION
  Report Type: Report from Study
  Country: US (occurrence: US)
  Receive Date: 20210922
  Receipt Date: 20211026
  Transmission Date: 20220303
  Serious: Yes (Hospitalization)
  Sender: FDA-Public Use
  Company Number: NVSC2021US213377

PATIENT
  Age: 76 Year
  Sex: Male

DRUGS (1)
  1. ENTRESTO [Suspect]
     Active Substance: SACUBITRIL\VALSARTAN
     Indication: Cardiac operation
     Dosage: 49/51 MG, DAILY
     Route: 048
     Dates: start: 20190821, end: 20190831

REACTIONS (3)
  - Blood pressure decreased [Recovered/Resolved]
  - Drug intolerance [Unknown]
  - Product use in unapproved indication [Unknown]

NARRATIVE: CASE EVENT DATE: 20190821
